FAERS Safety Report 7381743-7 (Version None)
Quarter: 2011Q1

REPORT INFORMATION
  Report Type: 
  Country: None (occurrence: None)
  Receive Date: 20110329
  Receipt Date: 20110304
  Transmission Date: 20110831
  Serious: Yes (Other)
  Sender: FDA-Public Use
  Company Number: US-BAYER-201027362NA

PATIENT
  Sex: Female
  Weight: 59 kg

DRUGS (6)
  1. LORTAB [Concomitant]
     Route: 048
  2. PREMPRO [Concomitant]
     Route: 048
  3. YASMIN [Suspect]
     Route: 048
  4. UNCODEABLE ^UNCLASSIFIABLE^ [Suspect]
  5. UNCODEABLE ^UNCLASSIFIABLE^ [Concomitant]
     Route: 030
  6. YAZ [Suspect]
     Indication: PRODUCT USED FOR UNKNOWN INDICATION
     Route: 048
     Dates: start: 20090701, end: 20091101

REACTIONS (3)
  - CONVULSION [None]
  - MIGRAINE [None]
  - INJURY [None]
